FAERS Safety Report 15466750 (Version 1)
Quarter: 2018Q4

REPORT INFORMATION
  Report Type: Spontaneous
  Country: DK (occurrence: DK)
  Receive Date: 20181005
  Receipt Date: 20181005
  Transmission Date: 20190204
  Serious: Yes (Hospitalization)
  Sender: FDA-Public Use
  Company Number: DK-TEVA-2018-DK-961005

PATIENT
  Age: 22 Year
  Sex: Female

DRUGS (1)
  1. SERTRALINE [Suspect]
     Active Substance: SERTRALINE HYDROCHLORIDE
     Indication: DEPRESSION
     Dosage: 100 MILLIGRAM DAILY; STYRKE: 100 MG.
     Route: 048
     Dates: start: 20170710, end: 20171213

REACTIONS (18)
  - Delusion [Not Recovered/Not Resolved]
  - Aggression [Recovered/Resolved]
  - Irritability [Recovered/Resolved]
  - Inappropriate affect [Recovered/Resolved]
  - Hallucination, auditory [Not Recovered/Not Resolved]
  - Distractibility [Recovered/Resolved]
  - Psychomotor hyperactivity [Recovered/Resolved]
  - Sexually inappropriate behaviour [Not Recovered/Not Resolved]
  - Logorrhoea [Not Recovered/Not Resolved]
  - Mania [Recovered/Resolved]
  - Libido increased [Recovered/Resolved]
  - Impulsive behaviour [Not Recovered/Not Resolved]
  - Self esteem inflated [Recovered/Resolved]
  - Language disorder [Not Recovered/Not Resolved]
  - Bipolar disorder [Not Recovered/Not Resolved]
  - Anxiety [Not Recovered/Not Resolved]
  - Psychotic disorder [Not Recovered/Not Resolved]
  - Insomnia [Recovered/Resolved]

NARRATIVE: CASE EVENT DATE: 201710
